FAERS Safety Report 8312987-5 (Version None)
Quarter: 2012Q2

REPORT INFORMATION
  Report Type: 
  Country: None (occurrence: None)
  Receive Date: 20120426
  Receipt Date: 20120413
  Transmission Date: 20120825
  Serious: Yes (Death)
  Sender: FDA-Public Use
  Company Number: IT-CELGENEUS-083-21880-12032905

PATIENT

DRUGS (12)
  1. RITUXIMAB [Concomitant]
     Route: 065
  2. ASPIRIN [Concomitant]
     Indication: THROMBOSIS PROPHYLAXIS
     Dosage: 100 MILLIGRAM
     Route: 065
     Dates: start: 20110426
  3. RIOPAN [Concomitant]
     Indication: PROPHYLAXIS
     Route: 065
     Dates: start: 20110512
  4. ADALAT [Concomitant]
     Indication: HYPERTENSION
     Route: 065
     Dates: start: 20110426
  5. LYRICA [Concomitant]
     Indication: PAIN
     Dosage: 50 MILLIGRAM
     Route: 065
     Dates: start: 20110502, end: 20110614
  6. INSULIN [Concomitant]
     Indication: DIABETES MELLITUS
     Dosage: 12-15-15
     Route: 065
     Dates: start: 20110426
  7. SYMBICORT [Concomitant]
     Indication: GRAFT VERSUS HOST DISEASE IN LUNG
     Route: 065
     Dates: start: 20110426
  8. TACHIDOL [Concomitant]
     Indication: PAIN
     Route: 065
     Dates: start: 20110614
  9. BACTRIM [Concomitant]
     Indication: ANTIBIOTIC PROPHYLAXIS
     Route: 065
     Dates: start: 20110426
  10. OXYCODONE AND ACETAMINOPHEN [Concomitant]
     Indication: PAIN
     Dosage: 30 MILLIGRAM
     Route: 065
     Dates: start: 20110531, end: 20110614
  11. REVLIMID [Suspect]
     Indication: NON-HODGKIN'S LYMPHOMA
     Dosage: 20 MILLIGRAM
     Route: 048
     Dates: start: 20110622, end: 20110712
  12. OMEPRAZOLE [Concomitant]
     Indication: PROPHYLAXIS
     Route: 065
     Dates: start: 20110426

REACTIONS (2)
  - GRAFT VERSUS HOST DISEASE IN LUNG [None]
  - RESPIRATORY FAILURE [None]
